FAERS Safety Report 19164193 (Version 1)
Quarter: 2021Q2

REPORT INFORMATION
  Report Type: Spontaneous
  Country: US (occurrence: US)
  Receive Date: 20210421
  Receipt Date: 20210421
  Transmission Date: 20210717
  Serious: Yes (Hospitalization, Other)
  Sender: FDA-Public Use
  Company Number: US-PFIZER INC-2021385113

PATIENT
  Age: 62 Year
  Sex: Female

DRUGS (2)
  1. TERIFLUNOMIDE. [Suspect]
     Active Substance: TERIFLUNOMIDE
     Dosage: UNK
  2. SOLU?MEDROL [Suspect]
     Active Substance: METHYLPREDNISOLONE SODIUM SUCCINATE
     Dosage: UNK

REACTIONS (20)
  - Blood pressure increased [Unknown]
  - Headache [Unknown]
  - Arthritis [Unknown]
  - Pallor [Unknown]
  - Migraine [Unknown]
  - Neuropathy peripheral [Unknown]
  - Pain in extremity [Unknown]
  - Burning sensation [Unknown]
  - Fall [Unknown]
  - Stress [Unknown]
  - Paraesthesia [Unknown]
  - Formication [Unknown]
  - Cold sweat [Unknown]
  - Amnesia [Unknown]
  - Nightmare [Unknown]
  - Hallucination [Unknown]
  - Hypoaesthesia [Unknown]
  - Cough [Unknown]
  - Dizziness [Unknown]
  - Back pain [Unknown]

NARRATIVE: CASE EVENT DATE: 20191001
